FAERS Safety Report 8816998 (Version 1)
Quarter: 2012Q4

REPORT INFORMATION
  Report Type: Spontaneous
  Country: US (occurrence: None)
  Receive Date: 20121003
  Receipt Date: 20121003
  Transmission Date: 20130627
  Serious: Yes (Hospitalization)
  Sender: FDA-Public Use
  Company Number: None

PATIENT
  Age: 66 Year
  Sex: Male
  Weight: 111.8 kg

DRUGS (1)
  1. WARFARIN [Suspect]
     Route: 048
     Dates: start: 20120531

REACTIONS (5)
  - International normalised ratio increased [None]
  - Contusion [None]
  - Small intestine ulcer [None]
  - Gastrointestinal oedema [None]
  - Abdominal discomfort [None]
